FAERS Safety Report 26157093 (Version 1)
Quarter: 2025Q4

REPORT INFORMATION
  Report Type: Report from Study
  Country: IN (occurrence: IN)
  Receive Date: 20251215
  Receipt Date: 20251215
  Transmission Date: 20260118
  Serious: Yes (Other)
  Sender: DAIICHI
  Company Number: IN-AstraZeneca-CH-01008555A

PATIENT
  Age: 26 Year
  Sex: Female
  Weight: 41 kg

DRUGS (1)
  1. ENHERTU [Suspect]
     Active Substance: FAM-TRASTUZUMAB DERUXTECAN-NXKI
     Indication: Product used for unknown indication
     Dosage: 100 ML, ONCE EVERY 3 WK
     Route: 040
     Dates: start: 20251111

REACTIONS (5)
  - Pulmonary oedema [Unknown]
  - Decreased appetite [Unknown]
  - Dyspnoea [Unknown]
  - Somnolence [Unknown]
  - Pain [Unknown]
